FAERS Safety Report 7606236-0 (Version None)
Quarter: 2011Q3

REPORT INFORMATION
  Report Type: 
  Country: None (occurrence: None)
  Receive Date: 20110713
  Receipt Date: 20110701
  Transmission Date: 20111222
  Serious: Yes (Life-Threatening, Hospitalization)
  Sender: FDA-Public Use
  Company Number: US-BAYER-2011-057801

PATIENT
  Sex: Female

DRUGS (1)
  1. AVELOX [Suspect]
     Dosage: 400 MG, ONCE

REACTIONS (5)
  - ERYTHEMA [None]
  - RASH [None]
  - DYSPNOEA [None]
  - ANAPHYLACTIC REACTION [None]
  - SWELLING [None]
